FAERS Safety Report 5695655-8 (Version None)
Quarter: 2008Q2

REPORT INFORMATION
  Report Type: 
  Country: None (occurrence: None)
  Receive Date: 20080407
  Receipt Date: 20080326
  Transmission Date: 20081010
  Serious: Yes (Death, Hospitalization)
  Sender: FDA-Public Use
  Company Number: FR-WYE-H03432308

PATIENT
  Sex: Male

DRUGS (7)
  1. CORDARONE [Suspect]
     Route: 048
     Dates: start: 20080106, end: 20080107
  2. PREVISCAN [Suspect]
     Route: 048
     Dates: start: 20080102, end: 20080103
  3. LASILIX [Suspect]
     Route: 048
     Dates: start: 20070104, end: 20070107
  4. CONTRAMAL [Suspect]
     Route: 048
     Dates: start: 20080103, end: 20080106
  5. SYMBICORT [Suspect]
     Route: 055
     Dates: start: 20080103, end: 20080107
  6. KARDEGIC [Suspect]
     Route: 048
     Dates: start: 20080104, end: 20080106
  7. ATORVASTATIN CALCIUM [Suspect]
     Route: 048
     Dates: start: 20080103, end: 20080106

REACTIONS (4)
  - ANAEMIA [None]
  - PERICARDIAL HAEMORRHAGE [None]
  - VENTRICULAR DYSFUNCTION [None]
  - VENTRICULAR FIBRILLATION [None]
